FAERS Safety Report 6889890-0 (Version None)
Quarter: 2010Q3

REPORT INFORMATION
  Report Type: 
  Country: None (occurrence: None)
  Receive Date: 20100730
  Receipt Date: 20080602
  Transmission Date: 20110219
  Serious: Yes (Other)
  Sender: FDA-Public Use
  Company Number: US-PFIZER INC-2008036212

PATIENT
  Sex: Male

DRUGS (4)
  1. LIPITOR [Suspect]
     Dates: start: 20060901
  2. CRESTOR [Suspect]
  3. VYTORIN [Suspect]
  4. ZOCOR [Suspect]

REACTIONS (1)
  - ASTHENIA [None]
